FAERS Safety Report 7658879-6 (Version None)
Quarter: 2011Q3

REPORT INFORMATION
  Report Type: 
  Country: None (occurrence: None)
  Receive Date: 20110802
  Receipt Date: 20110627
  Transmission Date: 20111222
  Serious: Yes (Other)
  Sender: FDA-Public Use
  Company Number: JPI-P-016033

PATIENT
  Age: 43 Year
  Sex: Female

DRUGS (6)
  1. ALPRAZOLAM [Concomitant]
  2. XYREM [Suspect]
     Indication: CATAPLEXY
     Dosage: ORAL, 15 GM (5 GM, 3 IN 1 D), ORAL
     Route: 048
     Dates: start: 20080826, end: 20110601
  3. XYREM [Suspect]
     Indication: CATAPLEXY
     Dosage: ORAL, 15 GM (5 GM, 3 IN 1 D), ORAL
     Route: 048
     Dates: start: 20110601
  4. ARMODAFINIL [Concomitant]
  5. AMPHETAMINE DEXTROAMPHETAMINE MIXED SALTS [Concomitant]
  6. ONDANSETRON [Concomitant]

REACTIONS (6)
  - FACE INJURY [None]
  - EPISTAXIS [None]
  - SKIN DISCOLOURATION [None]
  - WEIGHT DECREASED [None]
  - FALL [None]
  - LOWER LIMB FRACTURE [None]
